FAERS Safety Report 10647908 (Version 1)
Quarter: 2014Q4

REPORT INFORMATION
  Report Type: Spontaneous
  Country: US (occurrence: None)
  Receive Date: 20141211
  Receipt Date: 20141211
  Transmission Date: 20150529
  Serious: Yes (Life-Threatening, Hospitalization, Disabling)
  Sender: FDA-Public Use
  Company Number: None

PATIENT
  Age: 44 Year
  Sex: Female
  Weight: 81.65 kg

DRUGS (1)
  1. TRILIPIX [Suspect]
     Active Substance: FENOFIBRIC ACID
     Indication: BLOOD CHOLESTEROL
     Route: 048
     Dates: start: 2009, end: 2012

REACTIONS (10)
  - Osteoarthritis [None]
  - Gallbladder disorder [None]
  - Inflammation [None]
  - Blood creatine phosphokinase increased [None]
  - Muscle atrophy [None]
  - Asthenia [None]
  - Swelling [None]
  - Dysstasia [None]
  - Myalgia [None]
  - Myositis [None]

NARRATIVE: CASE EVENT DATE: 2009
